FAERS Safety Report 7692175-6 (Version None)
Quarter: 2011Q3

REPORT INFORMATION
  Report Type: 
  Country: None (occurrence: None)
  Receive Date: 20110818
  Receipt Date: 20110809
  Transmission Date: 20111222
  Serious: Yes (Death, Hospitalization)
  Sender: FDA-Public Use
  Company Number: PHHO2011US13706

PATIENT
  Age: 68 Year
  Sex: Male
  Weight: 55 kg

DRUGS (2)
  1. ZOLEDRONIC ACID [Suspect]
     Indication: METASTATIC RENAL CELL CARCINOMA
     Dosage: UNK
     Route: 042
     Dates: start: 20050920, end: 20060502
  2. SUNITINIB MALATE [Suspect]
     Dosage: 37.5 MG, QID
     Dates: start: 20060525

REACTIONS (3)
  - NEOPLASM PROGRESSION [None]
  - OSTEONECROSIS OF JAW [None]
  - NEOPLASM MALIGNANT [None]
